FAERS Safety Report 19904273 (Version 2)
Quarter: 2021Q4

REPORT INFORMATION
  Report Type: Spontaneous
  Country: US (occurrence: US)
  Receive Date: 20211001
  Receipt Date: 20211011
  Transmission Date: 20220303
  Serious: No
  Sender: FDA-Public Use
  Company Number: US-PFIZER INC-202101139128

PATIENT
  Age: 58 Year
  Sex: Female

DRUGS (1)
  1. IBRANCE [Suspect]
     Active Substance: PALBOCICLIB
     Indication: Breast cancer female
     Dosage: 125 MG, CYCLIC [1 TAB QD (ONCE A DAY) PO FOR 21 DAYS, THEN 7 DAYS OFF]
     Route: 048
     Dates: start: 20210512

REACTIONS (4)
  - Accidental overdose [Unknown]
  - Taste disorder [Unknown]
  - Dyspnoea [Unknown]
  - Arthralgia [Unknown]
